FAERS Safety Report 26140928 (Version 1)
Quarter: 2025Q4

REPORT INFORMATION
  Report Type: Spontaneous
  Country: US (occurrence: None)
  Receive Date: 20251210
  Receipt Date: 20251210
  Transmission Date: 20260118
  Serious: Yes (Hospitalization)
  Sender: FDA-CTU
  Company Number: None

PATIENT
  Age: 78 Year
  Sex: Male

DRUGS (1)
  1. EMPAGLIFLOZIN [Suspect]
     Active Substance: EMPAGLIFLOZIN
     Dosage: FREQUENCY : DAILY;
     Route: 048
     Dates: start: 20250708, end: 20250730

REACTIONS (9)
  - Blood creatinine increased [None]
  - Diabetic ketoacidosis [None]
  - Complication associated with device [None]
  - Device malfunction [None]
  - Klebsiella bacteraemia [None]
  - Post procedural infection [None]
  - Upper gastrointestinal haemorrhage [None]
  - Gastric ulcer [None]
  - Ejection fraction decreased [None]

NARRATIVE: CASE EVENT DATE: 20250730
